FAERS Safety Report 9730036 (Version 1)
Quarter: 2013Q4

REPORT INFORMATION
  Report Type: Spontaneous
  Country: US (occurrence: US)
  Receive Date: 20131204
  Receipt Date: 20131204
  Transmission Date: 20140711
  Serious: No
  Sender: FDA-Public Use
  Company Number: US-009507513-1311USA011112

PATIENT
  Sex: Female
  Weight: 53.97 kg

DRUGS (3)
  1. NEXPLANON [Suspect]
     Indication: CONTRACEPTION
     Dosage: DOSE/FREQUENCY: STANDARD
     Route: 059
     Dates: start: 20130806, end: 20131125
  2. VALTREX [Concomitant]
  3. TINDAMAX [Concomitant]

REACTIONS (1)
  - Hyperhidrosis [Unknown]
